FAERS Safety Report 8311143-4 (Version None)
Quarter: 2012Q2

REPORT INFORMATION
  Report Type: 
  Country: None (occurrence: None)
  Receive Date: 20120425
  Receipt Date: 20120416
  Transmission Date: 20120825
  Serious: Yes (Other)
  Sender: FDA-Public Use
  Company Number: US-ASTRAZENECA-2012SE25213

PATIENT
  Age: 67 Year
  Sex: Female

DRUGS (2)
  1. DEXILANT [Suspect]
     Route: 065
  2. NEXIUM [Suspect]
     Route: 048

REACTIONS (4)
  - DIZZINESS [None]
  - MALAISE [None]
  - CEREBROVASCULAR ACCIDENT [None]
  - HEAD INJURY [None]
